FAERS Safety Report 6027927-1 (Version None)
Quarter: 2009Q1

REPORT INFORMATION
  Report Type: 
  Country: None (occurrence: None)
  Receive Date: 20090105
  Receipt Date: 20081229
  Transmission Date: 20090719
  Serious: Yes (Other)
  Sender: FDA-Public Use
  Company Number: PHHY2008AR33464

PATIENT
  Sex: Male
  Weight: 3.25 kg

DRUGS (1)
  1. ACLASTA [Suspect]
     Indication: RHEUMATOID ARTHRITIS
     Dosage: UNK
     Route: 064

REACTIONS (6)
  - CAESAREAN SECTION [None]
  - MATERNAL DRUGS AFFECTING FOETUS [None]
  - NEONATAL DISORDER [None]
  - URETHRAL OBSTRUCTION [None]
  - URETHRAL OPERATION [None]
  - URINARY RETENTION [None]
